FAERS Safety Report 21713622 (Version 1)
Quarter: 2022Q4

REPORT INFORMATION
  Report Type: Spontaneous
  Country: US (occurrence: US)
  Receive Date: 20221212
  Receipt Date: 20221212
  Transmission Date: 20230112
  Serious: No
  Sender: FDA-Public Use
  Company Number: US-AMERICAN REGENT INC-2022002007

PATIENT
  Sex: Female

DRUGS (4)
  1. VENOFER [Suspect]
     Active Substance: IRON SUCROSE
     Indication: Product used for unknown indication
     Dosage: 200 MILLIGRAM IN 100 ML OF NORMAL SALINE
     Route: 042
     Dates: start: 20220709, end: 20220709
  2. VENOFER [Suspect]
     Active Substance: IRON SUCROSE
     Dosage: 200 MILLIGRAM IN 100 ML OF NORMAL SALINE
     Route: 042
     Dates: start: 20220710, end: 20220710
  3. VENOFER [Suspect]
     Active Substance: IRON SUCROSE
     Dosage: 200 MILLIGRAM IN 100 ML OF NORMAL SALINE
     Route: 042
     Dates: start: 20220711, end: 20220711
  4. VENOFER [Suspect]
     Active Substance: IRON SUCROSE
     Dosage: 200 MILLIGRAM IN 100 ML OF NORMAL SALINE
     Route: 042
     Dates: start: 20220712, end: 20220712

REACTIONS (3)
  - Discomfort [Unknown]
  - Injection site extravasation [Unknown]
  - Inappropriate schedule of product administration [Recovered/Resolved]

NARRATIVE: CASE EVENT DATE: 20220712
